FAERS Safety Report 16581139 (Version 1)
Quarter: 2019Q3

REPORT INFORMATION
  Report Type: Report from Study
  Country: CN (occurrence: CN)
  Receive Date: 20190716
  Receipt Date: 20190716
  Transmission Date: 20191004
  Serious: Yes (Other)
  Sender: FDA-Public Use
  Company Number: CN-GLAXOSMITHKLINE-CN2019APC096624

PATIENT

DRUGS (2)
  1. HEPATITIS B IMMUNE GLOBULIN [Suspect]
     Active Substance: HUMAN HEPATITIS B VIRUS IMMUNE GLOBULIN
     Indication: HEPATITIS B
     Dosage: UNK
     Route: 064
  2. LAMIVUDINE. [Suspect]
     Active Substance: LAMIVUDINE
     Indication: HEPATITIS B
     Dosage: 100 MG, UNK
     Route: 064

REACTIONS (3)
  - Drug ineffective [Unknown]
  - Congenital hepatitis B infection [Unknown]
  - Foetal exposure during pregnancy [Unknown]
